FAERS Safety Report 5475016-7 (Version None)
Quarter: 2007Q3

REPORT INFORMATION
  Report Type: 
  Country: None (occurrence: None)
  Receive Date: 20070831
  Receipt Date: 20070427
  Transmission Date: 20080115
  Serious: Yes (Other)
  Sender: FDA-Public Use
  Company Number: 238543

PATIENT
  Age: 71 Year
  Sex: Female

DRUGS (3)
  1. LUCENTIS [Suspect]
     Indication: MACULAR DEGENERATION
     Dosage: 0.5 UNK, Q4W,
     Dates: start: 20061219
  2. PAXIL [Concomitant]
  3. METFORMIN HCL [Concomitant]

REACTIONS (1)
  - SINUSITIS [None]
